FAERS Safety Report 10867192 (Version 2)
Quarter: 2015Q1

REPORT INFORMATION
  Report Type: Spontaneous
  Country: US (occurrence: US)
  Receive Date: 20150225
  Receipt Date: 20150304
  Transmission Date: 20150721
  Serious: Yes (Hospitalization)
  Sender: FDA-Public Use
  Company Number: US-UNITED THERAPEUTICS-UNT-2014-012955

PATIENT
  Age: 7 Year
  Sex: Female
  Weight: 18.5 kg

DRUGS (4)
  1. LETAIRIS [Concomitant]
     Active Substance: AMBRISENTAN
     Indication: PRODUCT USED FOR UNKNOWN INDICATION
  2. REMODULIN [Suspect]
     Active Substance: TREPROSTINIL
     Dosage: 0.155 ?G/KG/MIN, CONTINUING
     Route: 041
     Dates: start: 20090903
  3. REVATIO [Concomitant]
     Active Substance: SILDENAFIL CITRATE
     Indication: PRODUCT USED FOR UNKNOWN INDICATION
  4. REMODULIN [Suspect]
     Active Substance: TREPROSTINIL
     Indication: PULMONARY ARTERIAL HYPERTENSION
     Dosage: 0.155 ?G/KG/MIN, CONTINUING
     Route: 041
     Dates: start: 20090903

REACTIONS (6)
  - Dyspnoea [Unknown]
  - Oxygen consumption increased [Unknown]
  - Epistaxis [Unknown]
  - Pneumothorax [Unknown]
  - Thyroid disorder [Unknown]
  - Haematemesis [Unknown]

NARRATIVE: CASE EVENT DATE: 201502
